FAERS Safety Report 7474981-6 (Version None)
Quarter: 2011Q2

REPORT INFORMATION
  Report Type: 
  Country: None (occurrence: None)
  Receive Date: 20110505
  Receipt Date: 20110426
  Transmission Date: 20111010
  Serious: Yes (Disabling)
  Sender: FDA-Public Use
  Company Number: 2011MA004790

PATIENT
  Age: 72 Year
  Sex: Female

DRUGS (5)
  1. MIRTAZAPINE [Suspect]
     Indication: DEPRESSED MOOD
     Dosage: 45 MG;PO
     Route: 048
     Dates: start: 20100906, end: 20101007
  2. MIRTAZAPINE [Suspect]
     Indication: DEPRESSED MOOD
     Dosage: 45 MG;PO
     Route: 048
     Dates: start: 20100906, end: 20101007
  3. OLANZAPINE [Concomitant]
  4. MIRTAZAPINE [Suspect]
     Indication: DEPRESSED MOOD
     Dosage: 45 MG;PO
     Route: 048
     Dates: start: 20100906, end: 20101007
  5. MIRTAZAPINE [Suspect]
     Indication: DEPRESSED MOOD
     Dosage: 45 MG;PO
     Route: 048
     Dates: start: 20100906, end: 20101007

REACTIONS (2)
  - EXCESSIVE MASTURBATION [None]
  - COMPULSIVE SEXUAL BEHAVIOUR [None]
